FAERS Safety Report 8927072 (Version 1)
Quarter: 2012Q4

REPORT INFORMATION
  Report Type: 
  Country: ES (occurrence: ES)
  Receive Date: 20121127
  Receipt Date: 20121127
  Transmission Date: 20130627
  Serious: Yes (Hospitalization)
  Sender: FDA-Public Use
  Company Number: ES-ROCHE-1160043

PATIENT
  Age: 76 Year
  Sex: Female

DRUGS (5)
  1. MABTHERA [Suspect]
     Indication: LYMPHOMA
     Route: 042
     Dates: start: 20120220, end: 20120723
  2. VINCRISTINE SULFATE [Suspect]
     Indication: LYMPHOMA
     Route: 042
     Dates: start: 20120220, end: 20120723
  3. DOXORUBICIN [Suspect]
     Indication: LYMPHOMA
     Route: 042
     Dates: start: 20120220, end: 20120723
  4. CYCLOPHOSPHAMIDE [Suspect]
     Indication: LYMPHOMA
     Route: 042
     Dates: start: 20120222, end: 20120723
  5. PREDNISOLONE [Concomitant]

REACTIONS (3)
  - Platelet disorder [Recovered/Resolved]
  - Febrile neutropenia [Recovered/Resolved]
  - Diverticulitis [Recovered/Resolved]
